FAERS Safety Report 24192090 (Version 1)
Quarter: 2024Q3

REPORT INFORMATION
  Report Type: Report from Study
  Country: US (occurrence: None)
  Receive Date: 20240809
  Receipt Date: 20240809
  Transmission Date: 20241016
  Serious: Yes (Other)
  Sender: ASTRAZENECA
  Company Number: 2020SF04720

PATIENT
  Sex: Female

DRUGS (2)
  1. LYNPARZA [Suspect]
     Active Substance: OLAPARIB
     Indication: Ovarian cancer
     Route: 048
  2. KEFLEX [Concomitant]
     Active Substance: CEPHALEXIN
     Dosage: GENERIC

REACTIONS (8)
  - Loss of consciousness [Unknown]
  - Fall [Unknown]
  - Urinary tract infection [Unknown]
  - Neuropathy peripheral [Unknown]
  - Muscular weakness [Unknown]
  - Fatigue [Unknown]
  - Product dose omission issue [Unknown]
  - Insurance issue [Unknown]
